FAERS Safety Report 4585940-5 (Version None)
Quarter: 2005Q1

REPORT INFORMATION
  Report Type: 
  Country: None (occurrence: None)
  Receive Date: 20050214
  Receipt Date: 20050131
  Transmission Date: 20050727
  Serious: Yes (Hospitalization)
  Sender: FDA-Public Use
  Company Number: HQWYE204303JUN04

PATIENT
  Age: 21 Year
  Sex: Female

DRUGS (11)
  1. RAPAMUNE [Suspect]
     Indication: PROPHYLAXIS AGAINST TRANSPLANT REJECTION
     Dosage: 4 MG 1X PER 1 DAY, ORAL
     Route: 048
     Dates: start: 20040127, end: 20040629
  2. RANITIDINE HYDROCHLORIDE [Concomitant]
  3. ACETAMINOPHEN [Concomitant]
  4. VITAMIN B COMPLEX TAB [Concomitant]
  5. FERROGLYCINE SULFATE COMPLEX [Concomitant]
  6. KETOCONAZOLE [Concomitant]
  7. SODIUM BICARBONATE [Concomitant]
  8. MYCOPHENOLATE MOFETIL [Concomitant]
  9. CORTICOSTEROID NOS [Concomitant]
  10. RAPAMUNE [Suspect]
     Dosage: 3 MG 1X PER 1 DAY, ORAL
     Route: 048
     Dates: start: 20040630, end: 20040101
  11. RAPAMUNE [Suspect]
     Dosage: 2 MG 1X PER 1 DAY, ORAL
     Route: 048
     Dates: start: 20040101

REACTIONS (21)
  - ABDOMINAL PAIN UPPER [None]
  - ANAEMIA [None]
  - BLOOD BICARBONATE DECREASED [None]
  - BLOOD LACTATE DEHYDROGENASE INCREASED [None]
  - BLOOD POTASSIUM INCREASED [None]
  - BODY TEMPERATURE INCREASED [None]
  - DEHYDRATION [None]
  - DIARRHOEA [None]
  - DRUG LEVEL INCREASED [None]
  - FEELING COLD [None]
  - GASTRITIS [None]
  - HEADACHE [None]
  - HYPOCHROMIC ANAEMIA [None]
  - IMPAIRED GASTRIC EMPTYING [None]
  - MEAN CELL VOLUME DECREASED [None]
  - METABOLIC ACIDOSIS [None]
  - NAUSEA [None]
  - NEPHROPATHY [None]
  - PLATELET COUNT INCREASED [None]
  - PYREXIA [None]
  - RENAL IMPAIRMENT [None]
